FAERS Safety Report 9801828 (Version 1)
Quarter: 2014Q1

REPORT INFORMATION
  Report Type: Report from Study
  Country: CZ (occurrence: CZ)
  Receive Date: 20140107
  Receipt Date: 20140107
  Transmission Date: 20141002
  Serious: Yes (Hospitalization)
  Sender: FDA-Public Use
  Company Number: CZ-ABBVIE-14P-217-1185268-00

PATIENT
  Age: 68 Year
  Sex: Male
  Weight: 100 kg

DRUGS (13)
  1. HUMIRA [Suspect]
     Indication: RHEUMATOID ARTHRITIS
     Route: 058
  2. BETALOC [Concomitant]
     Indication: PRODUCT USED FOR UNKNOWN INDICATION
     Dosage: 1/2 TBL
  3. PERINDOPRIL ARGININE [Concomitant]
     Indication: PRODUCT USED FOR UNKNOWN INDICATION
  4. AMICIOTON TBL. (AMILORIDIUMCHLORID, CHLORTALIDON) [Concomitant]
     Indication: PRODUCT USED FOR UNKNOWN INDICATION
     Dosage: 1/2 TBL
  5. MILURIT [Concomitant]
     Indication: PRODUCT USED FOR UNKNOWN INDICATION
  6. TORVACARD [Concomitant]
     Indication: PRODUCT USED FOR UNKNOWN INDICATION
  7. OMEPRAZOL [Concomitant]
     Indication: PRODUCT USED FOR UNKNOWN INDICATION
  8. BETASERC [Concomitant]
     Indication: PRODUCT USED FOR UNKNOWN INDICATION
  9. DICLO [Concomitant]
     Indication: PRODUCT USED FOR UNKNOWN INDICATION
  10. DICLOFENACUM NATRICUM [Concomitant]
     Indication: PRODUCT USED FOR UNKNOWN INDICATION
  11. PREDNISONUM [Concomitant]
     Indication: PRODUCT USED FOR UNKNOWN INDICATION
  12. ACIDUM FOLICUM [Concomitant]
     Indication: PRODUCT USED FOR UNKNOWN INDICATION
     Dosage: 1 TBL
  13. MONOMACK [Concomitant]
     Indication: PRODUCT USED FOR UNKNOWN INDICATION
     Dosage: 1/2 TBL

REACTIONS (7)
  - Aortic stenosis [Recovered/Resolved]
  - Dilatation atrial [Recovered/Resolved]
  - Ventricular hypertrophy [Recovered/Resolved]
  - Atrial fibrillation [Recovered/Resolved]
  - Diabetes mellitus [Recovered/Resolved]
  - Chest pain [Recovered/Resolved]
  - Arterial disorder [Recovered/Resolved]
